FAERS Safety Report 12904189 (Version 1)
Quarter: 2016Q4

REPORT INFORMATION
  Report Type: Spontaneous
  Country: US (occurrence: US)
  Receive Date: 20161101
  Receipt Date: 20161101
  Transmission Date: 20170207
  Serious: Yes (Death)
  Sender: FDA-Public Use
  Company Number: None

PATIENT
  Age: 8 Year
  Sex: Male
  Weight: 46.4 kg

DRUGS (1)
  1. CASPOFUNGIN ACETATE [Suspect]
     Active Substance: CASPOFUNGIN ACETATE
     Dates: end: 20160821

REACTIONS (9)
  - Mucormycosis [None]
  - Clostridium difficile infection [None]
  - Immunosuppression [None]
  - Multiple organ dysfunction syndrome [None]
  - Viral infection [None]
  - Cardio-respiratory arrest [None]
  - Infection [None]
  - Transplant failure [None]
  - Bacteraemia [None]

NARRATIVE: CASE EVENT DATE: 20161014
